FAERS Safety Report 5505065-1 (Version None)
Quarter: 2007Q4

REPORT INFORMATION
  Report Type: 
  Country: None (occurrence: None)
  Receive Date: 20071102
  Receipt Date: 20071023
  Transmission Date: 20080405
  Serious: Yes (Hospitalization)
  Sender: FDA-Public Use
  Company Number: US-ROCHE-527386

PATIENT
  Age: 59 Year
  Sex: Female

DRUGS (2)
  1. CEFTRIAXONE SODIUM [Suspect]
     Indication: OSTEOMYELITIS
     Route: 065
  2. VANCOMYCIN [Suspect]
     Indication: OSTEOMYELITIS
     Route: 065

REACTIONS (1)
  - NEPHRITIS INTERSTITIAL [None]
